FAERS Safety Report 5993473-4 (Version None)
Quarter: 2008Q4

REPORT INFORMATION
  Report Type: 
  Country: None (occurrence: None)
  Receive Date: 20081212
  Receipt Date: 20081210
  Transmission Date: 20090506
  Serious: Yes (Life-Threatening, Hospitalization)
  Sender: FDA-Public Use
  Company Number: ES-EISAI MEDICAL RESEARCH-E2080-00087-SPO-ES

PATIENT
  Age: 31 Year
  Sex: Female

DRUGS (5)
  1. INOVELON [Suspect]
     Indication: LENNOX-GASTAUT SYNDROME
     Route: 048
     Dates: start: 20080901, end: 20081112
  2. MYSOLINE [Interacting]
     Indication: LENNOX-GASTAUT SYNDROME
     Route: 048
  3. LAMICTAL [Concomitant]
     Indication: LENNOX-GASTAUT SYNDROME
     Route: 048
  4. TOPAMAX [Concomitant]
     Indication: LENNOX-GASTAUT SYNDROME
     Route: 048
  5. DEPAKENE [Concomitant]
     Indication: LENNOX-GASTAUT SYNDROME
     Route: 048

REACTIONS (2)
  - DRUG INTERACTION [None]
  - STATUS EPILEPTICUS [None]
